FAERS Safety Report 7139522-1 (Version None)
Quarter: 2010Q4

REPORT INFORMATION
  Report Type: 
  Country: None (occurrence: None)
  Receive Date: 20101206
  Receipt Date: 20101122
  Transmission Date: 20110411
  Serious: Yes (Hospitalization, Other)
  Sender: FDA-Public Use
  Company Number: PHBS2009US01058

PATIENT
  Sex: Male

DRUGS (2)
  1. EXJADE [Suspect]
     Dosage: 2000 MG, QD
     Route: 048
  2. IMMUNOSUPPRESSANTS [Concomitant]
     Indication: BONE MARROW TRANSPLANT

REACTIONS (3)
  - BONE MARROW TRANSPLANT [None]
  - GRAFT VERSUS HOST DISEASE [None]
  - LIVER INJURY [None]
